FAERS Safety Report 15240881 (Version 1)
Quarter: 2018Q3

REPORT INFORMATION
  Report Type: Spontaneous
  Country: US (occurrence: US)
  Receive Date: 20180711
  Receipt Date: 20180711
  Transmission Date: 20181010
  Serious: Yes (Hospitalization)
  Sender: FDA-Public Use
  Company Number: None

PATIENT
  Age: 51 Year
  Sex: Female
  Weight: 63 kg

DRUGS (13)
  1. CLOPIDOGREL [Concomitant]
     Active Substance: CLOPIDOGREL BISULFATE
  2. FLUTICASONE 50 MCG/ACTUATION NASAL SPRAY [Concomitant]
  3. FUROSEMIDE 20 MG [Concomitant]
     Active Substance: FUROSEMIDE
  4. METHIMAZOLE. [Suspect]
     Active Substance: METHIMAZOLE
     Indication: HYPERTHYROIDISM
     Route: 048
  5. CYCLOBENZPRINE 5 MG [Concomitant]
  6. METOPROLOL SUCCINATE 50 MG 24 HR [Concomitant]
  7. ENTRESTO 24?26 MG PER TABLET [Concomitant]
  8. ASPIRIN 81 MG EC [Concomitant]
     Active Substance: ASPIRIN
  9. IBUPROFEN 800 MG [Concomitant]
     Active Substance: IBUPROFEN
  10. SPIRONOLACTONE 50 MG [Concomitant]
     Active Substance: SPIRONOLACTONE
  11. CONJUGATED ESTROGENS VAGINAL CREAM [Concomitant]
  12. DIGOXIN 250 MCG [Concomitant]
  13. ATORVASTATIN 80 MG [Concomitant]
     Active Substance: ATORVASTATIN

REACTIONS (3)
  - Headache [None]
  - Therapy cessation [None]
  - Dizziness [None]

NARRATIVE: CASE EVENT DATE: 20180628
